FAERS Safety Report 10563038 (Version 1)
Quarter: 2014Q4

REPORT INFORMATION
  Report Type: Spontaneous
  Country: US (occurrence: None)
  Receive Date: 20141103
  Receipt Date: 20141103
  Transmission Date: 20150529
  Serious: Yes (Other)
  Sender: FDA-Public Use
  Company Number: None

PATIENT
  Age: 51 Year
  Sex: Female
  Weight: 61.24 kg

DRUGS (1)
  1. CIPRO [Suspect]
     Active Substance: CIPROFLOXACIN HYDROCHLORIDE
     Indication: CLOSTRIDIUM DIFFICILE COLITIS
     Dosage: 1 PILL EVERY 12 HOURS ONCE DAILY TAKEN BY MOUTH
     Route: 048
     Dates: start: 20140601, end: 20140606

REACTIONS (4)
  - Hypoaesthesia [None]
  - Hallucination [None]
  - Alopecia [None]
  - Dizziness [None]

NARRATIVE: CASE EVENT DATE: 20140601
